FAERS Safety Report 6951036-8 (Version None)
Quarter: 2010Q3

REPORT INFORMATION
  Report Type: 
  Country: None (occurrence: None)
  Receive Date: 20100828
  Receipt Date: 20100310
  Transmission Date: 20110219
  Serious: No
  Sender: FDA-Public Use
  Company Number: US-ABBOTT-10P-163-0631543-00

PATIENT
  Sex: Female
  Weight: 59.02 kg

DRUGS (5)
  1. NIASPAN [Suspect]
     Indication: LOW DENSITY LIPOPROTEIN INCREASED
     Dosage: DAILY AT BEDTIME
     Route: 048
     Dates: start: 20100201, end: 20100308
  2. NIASPAN [Suspect]
     Dosage: DAILY AT BEDTIME
     Route: 048
     Dates: start: 20100308
  3. BETAMANIN [Concomitant]
     Indication: PRODUCT USED FOR UNKNOWN INDICATION
  4. ANIT-ANXIETY HERBAL SUPPLEMENT [Concomitant]
     Indication: PRODUCT USED FOR UNKNOWN INDICATION
  5. PROAIR HFA [Concomitant]
     Indication: DYSPNOEA

REACTIONS (2)
  - ACUTE SINUSITIS [None]
  - RASH PAPULAR [None]
